FAERS Safety Report 8212779-1 (Version None)
Quarter: 2012Q1

REPORT INFORMATION
  Report Type: 
  Country: None (occurrence: None)
  Receive Date: 20120315
  Receipt Date: 20120305
  Transmission Date: 20120608
  Serious: No
  Sender: FDA-Public Use
  Company Number: DE-JNJFOC-20120302659

PATIENT
  Sex: Female

DRUGS (4)
  1. DESOGESTREL AND ETHINYL ESTRADIOL [Suspect]
     Indication: ORAL CONTRACEPTION
     Route: 048
     Dates: end: 20111201
  2. XARELTO [Suspect]
     Route: 048
     Dates: start: 20111201
  3. XARELTO [Suspect]
     Indication: PRODUCT USED FOR UNKNOWN INDICATION
     Route: 048
     Dates: start: 20111201
  4. DESOGESTREL AND ETHINYL ESTRADIOL [Suspect]
     Indication: MENORRHAGIA
     Route: 048
     Dates: end: 20111201

REACTIONS (1)
  - MENORRHAGIA [None]
